FAERS Safety Report 5303488-7 (Version None)
Quarter: 2007Q2

REPORT INFORMATION
  Report Type: 
  Country: None (occurrence: None)
  Receive Date: 20070420
  Receipt Date: 20070410
  Transmission Date: 20071010
  Serious: Yes (Death)
  Sender: FDA-Public Use
  Company Number: FR-PFIZER INC-2007023418

PATIENT
  Sex: Female

DRUGS (9)
  1. LYRICA [Suspect]
     Indication: PAIN
     Route: 048
  2. LYRICA [Interacting]
     Indication: NEURALGIA
  3. MORPHINE SULFATE [Interacting]
     Indication: PAIN
     Dosage: DAILY DOSE:24MG
     Route: 058
  4. AMITRIPTYLINE HYDROCHLORIDE [Interacting]
     Indication: NEURALGIA
     Route: 048
  5. LARGACTIL [Concomitant]
     Route: 048
  6. ANASTROZOLE [Concomitant]
     Route: 048
  7. ISOPTIN [Concomitant]
     Route: 048
  8. NEXIUM [Concomitant]
     Route: 048
  9. DIGOXIN [Concomitant]
     Route: 048

REACTIONS (5)
  - DEPRESSED LEVEL OF CONSCIOUSNESS [None]
  - DRUG INTERACTION [None]
  - DYSKINESIA [None]
  - MYOCLONUS [None]
  - SOMNOLENCE [None]
